FAERS Safety Report 24736181 (Version 3)
Quarter: 2025Q1

REPORT INFORMATION
  Report Type: Spontaneous
  Country: CA (occurrence: CA)
  Receive Date: 20241216
  Receipt Date: 20250217
  Transmission Date: 20250409
  Serious: Yes (Other)
  Sender: AUROBINDO
  Company Number: CA-MLMSERVICE-20241125-PI268737-00281-1

PATIENT
  Age: 43 Year
  Sex: Female

DRUGS (10)
  1. REPAGLINIDE [Interacting]
     Active Substance: REPAGLINIDE
     Indication: Cystic fibrosis related diabetes
     Dosage: 8 MILLIGRAM, ONCE A DAY
     Route: 065
     Dates: start: 202102, end: 20230413
  2. REPAGLINIDE [Interacting]
     Active Substance: REPAGLINIDE
     Dosage: 16 MILLIGRAM, ONCE A DAY
     Route: 065
     Dates: start: 2023
  3. REPAGLINIDE [Interacting]
     Active Substance: REPAGLINIDE
     Route: 065
     Dates: start: 202304, end: 2023
  4. REPAGLINIDE [Interacting]
     Active Substance: REPAGLINIDE
     Dosage: 10 MILLIGRAM, ONCE A DAY
     Route: 065
     Dates: start: 20230413, end: 20230421
  5. REPAGLINIDE [Interacting]
     Active Substance: REPAGLINIDE
     Dosage: 12 MILLIGRAM, ONCE A DAY (TDD OF REPAGLINIDE WAS INCREASED TO 12 MG A DAY)
     Route: 065
     Dates: start: 20230421, end: 20230428
  6. REPAGLINIDE [Interacting]
     Active Substance: REPAGLINIDE
     Dosage: 16 MILLIGRAM, ONCE A DAY THE MAXIMUM DAILY DOSE
     Route: 065
     Dates: start: 20230428, end: 202305
  7. REPAGLINIDE [Interacting]
     Active Substance: REPAGLINIDE
     Route: 065
     Dates: start: 202306
  8. ELEXACAFTOR\IVACAFTOR\TEZACAFTOR [Interacting]
     Active Substance: ELEXACAFTOR\IVACAFTOR\TEZACAFTOR
     Indication: Pulmonary function test
     Dosage: 1 DOSAGE FORM, ONCE A DAY 1 PILL DAILY DUE TO PATIENT PREFERENCE
     Route: 065
     Dates: start: 202212, end: 202302
  9. ELEXACAFTOR\IVACAFTOR\TEZACAFTOR [Interacting]
     Active Substance: ELEXACAFTOR\IVACAFTOR\TEZACAFTOR
     Route: 065
     Dates: start: 202302, end: 20230428
  10. INSULIN NOS [Concomitant]
     Active Substance: INSULIN NOS
     Indication: Hyperglycaemia
     Route: 065

REACTIONS (2)
  - Hypertransaminasaemia [Recovered/Resolved]
  - Drug interaction [Recovered/Resolved]

NARRATIVE: CASE EVENT DATE: 20230101
